FAERS Safety Report 20195948 (Version 2)
Quarter: 2021Q4

REPORT INFORMATION
  Report Type: Report from Study
  Country: DE (occurrence: DE)
  Receive Date: 20211216
  Receipt Date: 20211223
  Transmission Date: 20220303
  Serious: Yes (Hospitalization, Other)
  Sender: FDA-Public Use
  Company Number: DE-Gedeon Richter Plc.-2021_GR_009751

PATIENT
  Sex: Female

DRUGS (1)
  1. LEVONORGESTREL [Suspect]
     Active Substance: LEVONORGESTREL
     Indication: Contraception
     Dosage: 52 MG, SINGLE, AT AN INITIAL RELEASE RATE OF 20 MICROGRAM PER 24 HOURS
     Route: 015
     Dates: start: 201807, end: 201808

REACTIONS (4)
  - Appendicitis [Unknown]
  - Uterine infection [Unknown]
  - Douglas^ abscess [Unknown]
  - Ovarian abscess [Unknown]

NARRATIVE: CASE EVENT DATE: 20180801
